FAERS Safety Report 20727705 (Version 1)
Quarter: 2022Q2

REPORT INFORMATION
  Report Type: Spontaneous
  Country: US (occurrence: None)
  Receive Date: 20220419
  Receipt Date: 20220419
  Transmission Date: 20220721
  Serious: No
  Sender: FDA-Public Use
  Company Number: US-ROCHE-2941879

PATIENT
  Age: 40 Year
  Sex: Female
  Weight: 86.260 kg

DRUGS (3)
  1. AVASTIN [Suspect]
     Active Substance: BEVACIZUMAB
     Indication: Ovarian cancer
     Dosage: RECEIVED 900 MG TODAY ;ONGOING: YES
     Route: 042
     Dates: start: 20210825
  2. DOXORUBICIN [Concomitant]
     Active Substance: DOXORUBICIN
     Indication: Ovarian cancer
     Dosage: YES
  3. DEXTROSE [Concomitant]
     Active Substance: DEXTROSE
     Dosage: UNKNOWN
     Route: 042

REACTIONS (2)
  - Intercepted medication error [Unknown]
  - No adverse event [Unknown]

NARRATIVE: CASE EVENT DATE: 20211020
